FAERS Safety Report 7031691-7 (Version None)
Quarter: 2010Q4

REPORT INFORMATION
  Report Type: 
  Country: None (occurrence: None)
  Receive Date: 20101001
  Receipt Date: 20100921
  Transmission Date: 20110411
  Serious: Yes (Hospitalization)
  Sender: FDA-Public Use
  Company Number: 1000016469

PATIENT
  Age: 93 Year
  Sex: Female

DRUGS (6)
  1. LEXAPRO [Suspect]
     Dosage: 2.5 MG (2.5 MG, 1 IN 1 D), ORAL
     Route: 048
  2. TEMAZEPAM [Concomitant]
  3. PANTOPRAZOLE SODIUM [Concomitant]
  4. PROCHLORPERAZINE (PROCHLORPERAZINE) (PROCHLORPERAZINE) [Concomitant]
  5. PERINDOPRIL (PERINDOPRIL) (PERINDOPRIL) [Concomitant]
  6. CRANBERRY (ASCORBIC ACID) (ASCORBIC ACID) [Concomitant]

REACTIONS (4)
  - CONVULSION [None]
  - DYSPNOEA [None]
  - FAECAL INCONTINENCE [None]
  - NAUSEA [None]
